FAERS Safety Report 6770335-6 (Version None)
Quarter: 2010Q2

REPORT INFORMATION
  Report Type: 
  Country: None (occurrence: None)
  Receive Date: 20100615
  Receipt Date: 20100604
  Transmission Date: 20101027
  Serious: Yes (Death, Other)
  Sender: FDA-Public Use
  Company Number: CN-PFIZER INC-2010067803

PATIENT
  Age: 75 Year
  Sex: Female

DRUGS (3)
  1. SULPERAZON [Suspect]
     Dosage: 3 G, 2X/DAY
     Route: 042
     Dates: start: 20100501, end: 20100504
  2. OMEPRAZOLE [Concomitant]
     Dosage: 40 MG, 1X/DAY
     Route: 042
     Dates: start: 20100501, end: 20100513
  3. FAT EMULSIONS [Concomitant]
     Dosage: 250 ML, /24H
     Route: 042

REACTIONS (2)
  - DEATH [None]
  - WHITE BLOOD CELL COUNT INCREASED [None]
